FAERS Safety Report 6212975-9 (Version None)
Quarter: 2009Q2

REPORT INFORMATION
  Report Type: 
  Country: None (occurrence: None)
  Receive Date: 20090602
  Receipt Date: 20090602
  Transmission Date: 20091009
  Serious: No
  Sender: FDA-Public Use
  Company Number: None

PATIENT
  Sex: Female
  Weight: 59 kg

DRUGS (2)
  1. VINORELBINE TARTRATE [Suspect]
     Dosage: 48 MG
     Dates: end: 20090520
  2. CISPLATIN [Suspect]
     Dosage: 120 MG
     Dates: end: 20090520

REACTIONS (8)
  - CHOLELITHIASIS [None]
  - GALLBLADDER POLYP [None]
  - GASTROOESOPHAGEAL REFLUX DISEASE [None]
  - IDIOSYNCRATIC DRUG REACTION [None]
  - LEFT VENTRICULAR HYPERTROPHY [None]
  - MITRAL VALVE INCOMPETENCE [None]
  - OESOPHAGITIS [None]
  - TRICUSPID VALVE INCOMPETENCE [None]
